FAERS Safety Report 6917766-9 (Version None)
Quarter: 2010Q3

REPORT INFORMATION
  Report Type: 
  Country: None (occurrence: None)
  Receive Date: 20100810
  Receipt Date: 20100729
  Transmission Date: 20110219
  Serious: Yes (Other)
  Sender: FDA-Public Use
  Company Number: BR-PFIZER INC-2010056674

PATIENT
  Age: 53 Year
  Sex: Female
  Weight: 57 kg

DRUGS (7)
  1. CHAMPIX [Suspect]
     Indication: SMOKING CESSATION THERAPY
     Dosage: 0.5 MG, 1X/DAY
     Route: 048
     Dates: start: 20100427, end: 20100719
  2. LOSARTAN POTASSIUM [Concomitant]
     Indication: HYPERTENSION
     Dosage: 100 MG, 1X/DAY
     Dates: start: 20040101
  3. HYGROTON [Concomitant]
     Indication: HYPERTENSION
     Dosage: 12.5 MG, UNK
     Dates: end: 20100715
  4. BUPROPION [Concomitant]
     Indication: STRESS
     Dosage: UNK
     Dates: start: 20060101
  5. FRONTAL [Concomitant]
     Indication: STRESS
     Dosage: 0.5 MG, 1X/DAY
  6. FRONTAL [Concomitant]
     Indication: ANXIETY
  7. CENTRUM [Concomitant]
     Dosage: UNK

REACTIONS (5)
  - AFFECT LABILITY [None]
  - ANXIETY [None]
  - BLOOD PRESSURE DECREASED [None]
  - DEPRESSION [None]
  - HALLUCINATION, VISUAL [None]
